FAERS Safety Report 7440536-2 (Version None)
Quarter: 2011Q2

REPORT INFORMATION
  Report Type: 
  Country: None (occurrence: None)
  Receive Date: 20110427
  Receipt Date: 20101130
  Transmission Date: 20111010
  Serious: Yes (Hospitalization)
  Sender: FDA-Public Use
  Company Number: A0898985A

PATIENT
  Age: 64 Year

DRUGS (1)
  1. AVANDIA [Suspect]
     Dosage: 4MG PER DAY
     Route: 048
     Dates: start: 20000921, end: 20070608

REACTIONS (3)
  - CATHETERISATION CARDIAC [None]
  - CORONARY ARTERY DISEASE [None]
  - PERCUTANEOUS CORONARY INTERVENTION [None]
